FAERS Safety Report 17064409 (Version 1)
Quarter: 2019Q4

REPORT INFORMATION
  Report Type: Spontaneous
  Country: US (occurrence: US)
  Receive Date: 20191023
  Receipt Date: 20191023
  Transmission Date: 20200122
  Serious: Yes (Other)
  Sender: FDA-Public Use
  Company Number: None

PATIENT
  Age: 73 Year
  Sex: Female
  Weight: 67.59 kg

DRUGS (4)
  1. AMBREIN [Concomitant]
  2. GAS-X [Concomitant]
     Active Substance: DIMETHICONE
  3. LIBRIUM [Concomitant]
     Active Substance: CHLORDIAZEPOXIDE HYDROCHLORIDE
  4. CIPROFLOXACIN. [Suspect]
     Active Substance: CIPROFLOXACIN
     Indication: GASTROENTERITIS ESCHERICHIA COLI
     Dosage: ?          QUANTITY:500 MG MILLIGRAM(S);?
     Route: 048
     Dates: start: 20190917, end: 20190921

REACTIONS (10)
  - Pain [None]
  - Back pain [None]
  - Arthralgia [None]
  - Hypoaesthesia [None]
  - Paraesthesia [None]
  - Neuropathy peripheral [None]
  - Tendon pain [None]
  - Gait inability [None]
  - Pain in extremity [None]
  - Quality of life decreased [None]

NARRATIVE: CASE EVENT DATE: 20190921
